FAERS Safety Report 15841747 (Version 1)
Quarter: 2019Q1

REPORT INFORMATION
  Report Type: Spontaneous
  Country: CA (occurrence: CA)
  Receive Date: 20190118
  Receipt Date: 20190118
  Transmission Date: 20190417
  Serious: Yes (Other)
  Sender: FDA-Public Use
  Company Number: CA-EISAI MEDICAL RESEARCH-EC-2019-050490

PATIENT
  Age: 23 Year
  Sex: Female

DRUGS (29)
  1. CARBAMAZEPINE. [Suspect]
     Active Substance: CARBAMAZEPINE
     Indication: SEIZURE
     Route: 065
  2. LACOSAMIDE. [Suspect]
     Active Substance: LACOSAMIDE
     Indication: SEIZURE
     Dosage: UNKNOWN
     Route: 065
  3. LACOSAMIDE. [Suspect]
     Active Substance: LACOSAMIDE
     Indication: GENERALISED TONIC-CLONIC SEIZURE
  4. PHENOBARBITAL. [Suspect]
     Active Substance: PHENOBARBITAL
     Indication: SEIZURE
     Dosage: UNKNOWN
     Route: 065
  5. RUFINAMIDE [Suspect]
     Active Substance: RUFINAMIDE
     Indication: SEIZURE
     Dosage: UNKNOWN
     Route: 048
  6. APO-LAMOTRIGINE [Suspect]
     Active Substance: LAMOTRIGINE
     Indication: GENERALISED TONIC-CLONIC SEIZURE
  7. APO-TOPIRAMATE [Suspect]
     Active Substance: TOPIRAMATE
     Indication: GENERALISED TONIC-CLONIC SEIZURE
  8. PHENOBARBITAL. [Suspect]
     Active Substance: PHENOBARBITAL
     Indication: GENERALISED TONIC-CLONIC SEIZURE
  9. VALPROIC ACID. [Suspect]
     Active Substance: VALPROIC ACID
     Indication: GENERALISED TONIC-CLONIC SEIZURE
     Dosage: UNKNOWN
     Route: 065
  10. RUFINAMIDE [Suspect]
     Active Substance: RUFINAMIDE
     Indication: PETIT MAL EPILEPSY
  11. ACETAZOLAMIDE. [Suspect]
     Active Substance: ACETAZOLAMIDE
     Indication: GENERALISED TONIC-CLONIC SEIZURE
  12. APO-LEVETIRACETAM [Suspect]
     Active Substance: LEVETIRACETAM
     Indication: GENERALISED TONIC-CLONIC SEIZURE
  13. PHENOBARBITAL. [Suspect]
     Active Substance: PHENOBARBITAL
     Indication: PETIT MAL EPILEPSY
  14. PHENYTOIN. [Suspect]
     Active Substance: PHENYTOIN
     Indication: GENERALISED TONIC-CLONIC SEIZURE
     Dosage: UNKNOWN
     Route: 065
  15. ACETAZOLAMIDE. [Suspect]
     Active Substance: ACETAZOLAMIDE
     Indication: PETIT MAL EPILEPSY
     Dosage: UNKNOWN
     Route: 065
  16. APO-LEVETIRACETAM [Suspect]
     Active Substance: LEVETIRACETAM
     Indication: SEIZURE
     Dosage: UNKNOWN
     Route: 065
  17. CARBAMAZEPINE. [Suspect]
     Active Substance: CARBAMAZEPINE
     Indication: PETIT MAL EPILEPSY
  18. ETHOSUXIMIDE. [Suspect]
     Active Substance: ETHOSUXIMIDE
     Indication: PETIT MAL EPILEPSY
  19. APO-LEVETIRACETAM [Suspect]
     Active Substance: LEVETIRACETAM
     Indication: PETIT MAL EPILEPSY
  20. APO-TOPIRAMATE [Suspect]
     Active Substance: TOPIRAMATE
     Indication: PETIT MAL EPILEPSY
  21. APO-TOPIRAMATE [Suspect]
     Active Substance: TOPIRAMATE
     Indication: SEIZURE
     Dosage: UNKNOWN
     Route: 065
  22. CARBAMAZEPINE. [Suspect]
     Active Substance: CARBAMAZEPINE
     Indication: GENERALISED TONIC-CLONIC SEIZURE
  23. CLOBAZAM. [Suspect]
     Active Substance: CLOBAZAM
     Indication: GENERALISED TONIC-CLONIC SEIZURE
     Dosage: UNKNOWN
     Route: 065
  24. LACOSAMIDE. [Suspect]
     Active Substance: LACOSAMIDE
     Indication: PETIT MAL EPILEPSY
  25. APO-LAMOTRIGINE [Suspect]
     Active Substance: LAMOTRIGINE
     Indication: SEIZURE
     Route: 065
  26. ETHOSUXIMIDE. [Suspect]
     Active Substance: ETHOSUXIMIDE
     Indication: GENERALISED TONIC-CLONIC SEIZURE
  27. RUFINAMIDE [Suspect]
     Active Substance: RUFINAMIDE
     Indication: GENERALISED TONIC-CLONIC SEIZURE
  28. APO-LAMOTRIGINE [Suspect]
     Active Substance: LAMOTRIGINE
     Indication: PETIT MAL EPILEPSY
  29. ETHOSUXIMIDE. [Suspect]
     Active Substance: ETHOSUXIMIDE
     Indication: SEIZURE
     Dosage: UNKNOWN
     Route: 065

REACTIONS (2)
  - Off label use [Unknown]
  - Drug ineffective [Unknown]
